FAERS Safety Report 24246919 (Version 1)
Quarter: 2024Q3

REPORT INFORMATION
  Report Type: Report from Study
  Country: CN (occurrence: CN)
  Receive Date: 20240826
  Receipt Date: 20240826
  Transmission Date: 20241017
  Serious: Yes (Hospitalization, Other)
  Sender: AUROBINDO
  Company Number: CN-AUROBINDO-AUR-APL-2024-040786

PATIENT
  Age: 73 Year
  Sex: Female

DRUGS (3)
  1. LETROZOLE [Suspect]
     Active Substance: LETROZOLE
     Indication: Breast cancer metastatic
     Dosage: 2.5 MILLIGRAM, DAILY (FOR APPROXIMATELY 5 YEARS)
     Route: 048
  2. EXEMESTANE [Suspect]
     Active Substance: EXEMESTANE
     Indication: Breast cancer metastatic
     Dosage: 2.5 MILLIGRAM, DAILY (FOR 8 WEEKS)
  3. TUCIDINOSTAT [Suspect]
     Active Substance: TUCIDINOSTAT
     Indication: Breast cancer metastatic
     Dosage: 30 MILLIGRAM (EVERY 3 DAYS FOR 4 WEEKS)

REACTIONS (1)
  - Treatment failure [Unknown]
